FAERS Safety Report 8017114-X (Version None)
Quarter: 2012Q1

REPORT INFORMATION
  Report Type: 
  Country: None (occurrence: None)
  Receive Date: 20120102
  Receipt Date: 20111228
  Transmission Date: 20120608
  Serious: Yes (Death, Life-Threatening, Hospitalization)
  Sender: FDA-Public Use
  Company Number: CN-ROCHE-1010069

PATIENT
  Sex: Male
  Weight: 68 kg

DRUGS (6)
  1. ENALAPRIL MALEATE [Concomitant]
     Indication: HYPERTENSION
  2. TAMSULOSIN HCL [Concomitant]
     Indication: BENIGN PROSTATIC HYPERPLASIA
  3. AVASTIN [Suspect]
     Indication: COLORECTAL CANCER METASTATIC
     Route: 041
     Dates: start: 20111021, end: 20111021
  4. FLUOROURACIL [Suspect]
     Indication: PALLIATIVE CARE
     Dates: start: 20111021, end: 20111023
  5. GRANISETRON [Concomitant]
     Indication: VOMITING
     Route: 042
     Dates: start: 20111021, end: 20111023
  6. IRINOTECAN HCL [Suspect]
     Indication: PALLIATIVE CARE
     Route: 041
     Dates: start: 20111021, end: 20111021

REACTIONS (4)
  - DEATH [None]
  - GASTROINTESTINAL HAEMORRHAGE [None]
  - INTESTINAL OBSTRUCTION [None]
  - BONE MARROW FAILURE [None]
